FAERS Safety Report 12877669 (Version 9)
Quarter: 2017Q1

REPORT INFORMATION
  Report Type: Spontaneous
  Country: US (occurrence: US)
  Receive Date: 20161024
  Receipt Date: 20170303
  Transmission Date: 20170428
  Serious: Yes (Other)
  Sender: FDA-Public Use
  Company Number: US-PFIZER INC-2016475989

PATIENT
  Age: 83 Year
  Sex: Female
  Weight: 48 kg

DRUGS (24)
  1. ZYLOPRIM [Concomitant]
     Active Substance: ALLOPURINOL
     Dosage: 100 MG, ONCE A DAY NIGHTLY
     Route: 048
  2. CHOLECALCIFEROL [Concomitant]
     Active Substance: CHOLECALCIFEROL
     Dosage: 1000 IU, DAILY
     Route: 048
  3. FENTANYL. [Concomitant]
     Active Substance: FENTANYL
     Dosage: UNK
  4. SUTENT [Suspect]
     Active Substance: SUNITINIB MALATE
     Dosage: 37.5 MG, UNK
     Dates: end: 20170208
  5. MAGNESIUM OXIDE. [Concomitant]
     Active Substance: MAGNESIUM OXIDE
     Dosage: 250 MG, DAILY
     Route: 048
  6. ALLOPURINOL. [Concomitant]
     Active Substance: ALLOPURINOL
     Dosage: UNK
  7. SUTENT [Suspect]
     Active Substance: SUNITINIB MALATE
     Indication: CARCINOID TUMOUR
     Dosage: 37.5 MG, DAILY
     Route: 048
     Dates: start: 20160927, end: 2016
  8. POTASSIUM GLUCONATE [Concomitant]
     Active Substance: POTASSIUM GLUCONATE
     Dosage: 595 MG, UNK
     Route: 048
  9. ZOFRAN [Concomitant]
     Active Substance: ONDANSETRON HYDROCHLORIDE
     Dosage: UNK
  10. FERROUS SULFATE. [Concomitant]
     Active Substance: FERROUS SULFATE
     Dosage: 325 MG, DAILY
     Route: 048
  11. PROBIOTIC BLEND ORAL [Concomitant]
     Dosage: 1 DF, TWICE A DAY (TAKE ONE PROBIOTIC GUMMY TAB DAILY)
     Route: 048
  12. CLARITIN [Concomitant]
     Active Substance: LORATADINE
     Dosage: 10 MG, DAILY
     Route: 048
  13. TURMERIC CURCUMIN [Concomitant]
     Active Substance: TURMERIC
     Dosage: 1 DF, DAILY
     Route: 048
  14. SUTENT [Suspect]
     Active Substance: SUNITINIB MALATE
     Dosage: 37.5 MG, DAILY
     Dates: start: 20161017, end: 2016
  15. TYLENOL [Concomitant]
     Active Substance: ACETAMINOPHEN
     Indication: PAIN
     Dosage: 650 MG, AS NEEDED (EVERY 6 HOURS)
     Route: 048
  16. PAPAYA ENZYMES [Concomitant]
     Dosage: 3 DOSAGE FORMS (DF), ONCE A DAY EVERY MORNING
     Route: 048
  17. LASIX [Concomitant]
     Active Substance: FUROSEMIDE
     Dosage: 20 MG, DAILY
     Route: 048
  18. RESTORIL [Concomitant]
     Active Substance: TEMAZEPAM
     Indication: SLEEP DISORDER
     Dosage: 15 MG, AS NEEDED (NIGHTLY)
     Route: 048
  19. TENORMIN [Concomitant]
     Active Substance: ATENOLOL
     Indication: SWELLING
     Dosage: 50 MG, DAILY
     Route: 048
  20. MULTIVITAMINS [Concomitant]
     Active Substance: VITAMINS
     Dosage: UNK
  21. VITAMIN D [Concomitant]
     Active Substance: CHOLECALCIFEROL
     Dosage: UNK
  22. LASIX [Concomitant]
     Active Substance: FUROSEMIDE
     Dosage: UNK, AS NEEDED (PRN)
  23. TEMAZEPAM. [Concomitant]
     Active Substance: TEMAZEPAM
     Dosage: UNK
  24. VITAMIN D3 [Concomitant]
     Active Substance: CHOLECALCIFEROL
     Dosage: 1 DF, DAILY
     Route: 048

REACTIONS (39)
  - Short-bowel syndrome [Unknown]
  - Pyrexia [Recovered/Resolved]
  - Gingival pain [Not Recovered/Not Resolved]
  - Rhinorrhoea [Unknown]
  - Abdominal pain [Recovering/Resolving]
  - Peripheral swelling [Unknown]
  - Vertigo [Unknown]
  - Fall [Unknown]
  - Noninfective gingivitis [Unknown]
  - Fatigue [Unknown]
  - Abnormal faeces [Recovering/Resolving]
  - Weight decreased [Unknown]
  - Diarrhoea [Not Recovered/Not Resolved]
  - Blood creatinine increased [Unknown]
  - Energy increased [Unknown]
  - Anaemia [Unknown]
  - Diarrhoea [Unknown]
  - Joint swelling [Unknown]
  - Condition aggravated [Unknown]
  - Oral pain [Recovering/Resolving]
  - Hypersensitivity [Unknown]
  - Lacrimation increased [Unknown]
  - Somnolence [Unknown]
  - Pain [Unknown]
  - Pain in jaw [Not Recovered/Not Resolved]
  - Blood chromogranin A increased [Unknown]
  - Flatulence [Not Recovered/Not Resolved]
  - Chills [Unknown]
  - Spinal column injury [Unknown]
  - Fractured coccyx [Unknown]
  - Malaise [Unknown]
  - Blood pressure increased [Unknown]
  - Product use issue [Not Recovered/Not Resolved]
  - Enamel anomaly [Unknown]
  - Renal impairment [Unknown]
  - Lactose intolerance [Unknown]
  - Gingival recession [Unknown]
  - Head injury [Unknown]
  - Gingival swelling [Unknown]

NARRATIVE: CASE EVENT DATE: 2016
